FAERS Safety Report 6885529-9 (Version None)
Quarter: 2010Q3

REPORT INFORMATION
  Report Type: 
  Country: None (occurrence: None)
  Receive Date: 20100729
  Receipt Date: 20090223
  Transmission Date: 20110219
  Serious: No
  Sender: FDA-Public Use
  Company Number: US-PFIZER INC-2008046668

PATIENT
  Sex: Male
  Weight: 75 kg

DRUGS (9)
  1. CELEBREX [Suspect]
     Indication: ARTHRITIS
     Dosage: 200 MG, 1X/DAY
     Dates: start: 20030101, end: 20080531
  2. CELEBREX [Suspect]
     Indication: JOINT INJURY
  3. CELEBREX [Suspect]
     Indication: ARTHRALGIA
  4. CELEBREX [Suspect]
     Indication: MUSCULOSKELETAL PAIN
  5. CELEBREX [Suspect]
     Indication: PAIN IN EXTREMITY
  6. CELEBREX [Suspect]
  7. PREVACID [Concomitant]
  8. LUNESTA [Concomitant]
  9. XENICAL [Concomitant]

REACTIONS (5)
  - DIVERTICULITIS [None]
  - DYSPEPSIA [None]
  - HEPATIC STEATOSIS [None]
  - MUSCULOSKELETAL PAIN [None]
  - OESOPHAGEAL DISCOMFORT [None]
